FAERS Safety Report 11558624 (Version 1)
Quarter: 2015Q3

REPORT INFORMATION
  Report Type: Spontaneous
  Country: US (occurrence: None)
  Receive Date: 20150925
  Receipt Date: 20150925
  Transmission Date: 20151125
  Serious: Yes (Disabling)
  Sender: FDA-Public Use
  Company Number: None

PATIENT
  Age: 59 Year
  Sex: Male
  Weight: 83.46 kg

DRUGS (1)
  1. CIPRO [Suspect]
     Active Substance: CIPROFLOXACIN HYDROCHLORIDE
     Indication: PROSTATITIS
     Dates: start: 20140523, end: 20140621

REACTIONS (5)
  - Ageusia [None]
  - Nerve injury [None]
  - Neuropathy peripheral [None]
  - Oral discomfort [None]
  - Tendonitis [None]

NARRATIVE: CASE EVENT DATE: 20140523
